FAERS Safety Report 12982024 (Version 1)
Quarter: 2016Q4

REPORT INFORMATION
  Report Type: Report from Study
  Country: FR (occurrence: FR)
  Receive Date: 20161129
  Receipt Date: 20161129
  Transmission Date: 20170207
  Serious: Yes (Other)
  Sender: FDA-Public Use
  Company Number: PHHY2016FR079430

PATIENT
  Age: 68 Year
  Sex: Female

DRUGS (4)
  1. AFINITOR [Suspect]
     Active Substance: EVEROLIMUS
     Dosage: 10 MG, QD
     Route: 048
     Dates: start: 20150212, end: 20150414
  2. AROMASINE [Suspect]
     Active Substance: EXEMESTANE
     Indication: BREAST CANCER METASTATIC
     Dosage: 25 MG, QD
     Route: 048
     Dates: start: 20150113, end: 20150526
  3. AFINITOR [Suspect]
     Active Substance: EVEROLIMUS
     Indication: BREAST CANCER METASTATIC
     Dosage: 5 MG, QD
     Route: 048
     Dates: start: 20150113, end: 20150212
  4. AFINITOR [Suspect]
     Active Substance: EVEROLIMUS
     Dosage: 5 MG, QD
     Route: 048
     Dates: start: 20150414

REACTIONS (17)
  - Mucosal inflammation [Recovered/Resolved]
  - Cholelithiasis [Unknown]
  - Mucosal inflammation [Recovered/Resolved]
  - Dyspnoea [Unknown]
  - Cholecystitis [Recovered/Resolved]
  - Respiratory rate increased [Unknown]
  - Dyspnoea exertional [Recovered/Resolved]
  - Lung disorder [Recovered/Resolved]
  - Oral pain [Recovered/Resolved]
  - Cough [Unknown]
  - Abdominal pain upper [Unknown]
  - Stomatitis [Unknown]
  - Mucosal inflammation [Recovered/Resolved]
  - Arthralgia [Not Recovered/Not Resolved]
  - Constipation [Not Recovered/Not Resolved]
  - Dyspnoea [Recovered/Resolved]
  - Gastritis [Unknown]

NARRATIVE: CASE EVENT DATE: 20150127
